FAERS Safety Report 23561929 (Version 1)
Quarter: 2024Q1

REPORT INFORMATION
  Report Type: Spontaneous
  Country: ES (occurrence: ES)
  Receive Date: 20240225
  Receipt Date: 20240225
  Transmission Date: 20240410
  Serious: Yes (Life-Threatening)
  Sender: FDA-Public Use
  Company Number: ES-ENDO PHARMACEUTICALS INC-2024-001000

PATIENT
  Age: 8 Decade
  Sex: Male
  Weight: 64 kg

DRUGS (3)
  1. ARGATROBAN [Suspect]
     Active Substance: ARGATROBAN
     Indication: Anticoagulant therapy
     Dosage: 0.3 (?G/KG/MIN) (INITIAL DOSE), INFUSION
     Route: 051
  2. HEPARIN [Concomitant]
     Active Substance: HEPARIN SODIUM
     Indication: Anticoagulant therapy
     Dosage: (INITIAL BOLUS OF 300 IU/KG) UNKNOWN
     Route: 040
  3. HEPARIN [Concomitant]
     Active Substance: HEPARIN SODIUM
     Dosage: (RE-STARTED AT 10 IU/KG/HOUR)
     Route: 051

REACTIONS (1)
  - Neutropenia [Recovered/Resolved]
